FAERS Safety Report 11195228 (Version 1)
Quarter: 2015Q2

REPORT INFORMATION
  Report Type: Report from Study
  Country: US (occurrence: None)
  Receive Date: 20150603
  Receipt Date: 20150603
  Transmission Date: 20150821
  Serious: No
  Sender: FDA-Public Use
  Company Number: 2014TASUS000590

PATIENT
  Age: 51 Year
  Sex: Female

DRUGS (20)
  1. HETLIOZ [Suspect]
     Active Substance: TASIMELTEON
     Indication: CIRCADIAN RHYTHM SLEEP DISORDER
     Route: 048
     Dates: start: 2014
  2. VOLTAREN [Concomitant]
     Active Substance: DICLOFENAC SODIUM
  3. MULTIVITAMINS (ASCORBIC ACID, ERGOCALCIFEROL, FOLIC ACID, NICOTINAMIDE, PANTHENOL, RETINOL, RIBOFLAVIN, THIAMINE HYDROCHLORIDE) [Concomitant]
     Active Substance: VITAMINS
  4. LIDODERM [Concomitant]
     Active Substance: LIDOCAINE
  5. TRAMADOL HYDROCHLORIDE. [Concomitant]
     Active Substance: TRAMADOL HYDROCHLORIDE
  6. ABREVA (DOCOSANOL) [Concomitant]
  7. SINGULAIR (MONTELUKAST SODIUM) [Concomitant]
  8. TIZANIDINE HCL (TIZANIDINE) [Concomitant]
  9. MUCINEX (GUAIFENESIN) [Concomitant]
  10. ATENOLOL. [Concomitant]
     Active Substance: ATENOLOL
  11. NORTRIPTYLINE HCL (NORTRIPTYLINE HYDROCHLORIDE) [Concomitant]
  12. LIPITOR [Concomitant]
     Active Substance: ATORVASTATIN CALCIUM
  13. METFORMIN HCL (METFORMIN HYDROCHLORIDE) [Concomitant]
     Active Substance: METFORMIN HYDROCHLORIDE
  14. TRAZODONE HCL (TRAZODONE HYDROCHLORIDE) [Concomitant]
  15. VERAPAMIL HCL (VERAPAMIL HYDROCHLORIDE) [Concomitant]
  16. LOVAZA [Concomitant]
     Active Substance: OMEGA-3-ACID ETHYL ESTERS
  17. CYMBALTA [Concomitant]
     Active Substance: DULOXETINE HYDROCHLORIDE
  18. ASPIRIN (ACETYLSALICYLIC ACID) [Concomitant]
     Active Substance: ASPIRIN
  19. TRICOR [Concomitant]
     Active Substance: FENOFIBRATE
  20. VITAMIN C (CALCIUM ASCORBATE) [Concomitant]

REACTIONS (6)
  - Initial insomnia [None]
  - Poor quality sleep [None]
  - Insomnia [None]
  - Unevaluable event [None]
  - Drug ineffective [None]
  - Prescribed overdose [None]

NARRATIVE: CASE EVENT DATE: 20141207
